FAERS Safety Report 4519225-X (Version None)
Quarter: 2004Q4

REPORT INFORMATION
  Report Type: 
  Country: None (occurrence: None)
  Receive Date: 20041206
  Receipt Date: 20031025
  Transmission Date: 20050328
  Serious: No
  Sender: FDA-Public Use
  Company Number: US-BRISTOL-MYERS SQUIBB COMPANY-12419693

PATIENT
  Age: 28 Year
  Sex: Male
  Weight: 75 kg

DRUGS (3)
  1. VIDEX EC [Suspect]
     Indication: HIV INFECTION
     Dosage: THERAPY INTERRUPTED 10/27/2003
     Route: 048
     Dates: start: 20031001
  2. VIREAD [Concomitant]
  3. VIRAMUNE [Concomitant]

REACTIONS (3)
  - BURNING SENSATION [None]
  - PYREXIA [None]
  - RASH [None]
